FAERS Safety Report 5863520-9 (Version None)
Quarter: 2008Q3

REPORT INFORMATION
  Report Type: 
  Country: None (occurrence: None)
  Receive Date: 20080828
  Receipt Date: 20080821
  Transmission Date: 20090109
  Serious: Yes (Congenital Anomaly)
  Sender: FDA-Public Use
  Company Number: US-BOEHRINGER INGELHEIM GMBH, GERMANY-2008-BP-13178RO

PATIENT
  Sex: Female

DRUGS (6)
  1. PREDNISONE TAB [Suspect]
     Indication: DRUG EXPOSURE DURING PREGNANCY
     Route: 064
  2. MYCOPHENOLATE MOFETIL [Suspect]
     Indication: DRUG EXPOSURE DURING PREGNANCY
     Route: 064
  3. TACROLIMUS [Suspect]
     Indication: DRUG EXPOSURE DURING PREGNANCY
     Route: 064
  4. ANTIBIOTICS [Suspect]
     Indication: DRUG EXPOSURE DURING PREGNANCY
     Route: 064
  5. VITAMIN TAB [Suspect]
     Indication: DRUG EXPOSURE DURING PREGNANCY
     Route: 064
  6. FOLIC ACID [Suspect]
     Indication: DRUG EXPOSURE DURING PREGNANCY
     Route: 064

REACTIONS (10)
  - CATARACT [None]
  - CLEFT LIP AND PALATE [None]
  - CYTOGENETIC ABNORMALITY [None]
  - DOUBLE OUTLET RIGHT VENTRICLE [None]
  - FINGER DEFORMITY [None]
  - FLUORESCENT IN SITU HYBRIDISATION [None]
  - INTESTINAL MALROTATION [None]
  - MICROPHTHALMOS [None]
  - MICROTIA [None]
  - RIB DEFORMITY [None]
